FAERS Safety Report 5725105-4 (Version None)
Quarter: 2008Q2

REPORT INFORMATION
  Report Type: 
  Country: None (occurrence: None)
  Receive Date: 20080501
  Receipt Date: 20080414
  Transmission Date: 20081010
  Serious: Yes (Hospitalization, Other)
  Sender: FDA-Public Use
  Company Number: US-BAYER-200812456NA

PATIENT
  Age: 73 Year
  Sex: Female
  Weight: 66 kg

DRUGS (4)
  1. MAGNEVIST [Suspect]
     Indication: NUCLEAR MAGNETIC RESONANCE IMAGING BRAIN
     Dosage: TOTAL DAILY DOSE: 14 ML  UNIT DOSE: 14 ML
     Route: 042
     Dates: start: 20080125, end: 20080125
  2. LIPITOR [Concomitant]
     Dosage: TOTAL DAILY DOSE: 20 MG
  3. SYNTHROID [Concomitant]
     Dosage: TOTAL DAILY DOSE: 1 MG
  4. CORGARD [Concomitant]
     Dosage: TOTAL DAILY DOSE: 80 MG

REACTIONS (4)
  - DIZZINESS [None]
  - DYSPNOEA [None]
  - LOSS OF CONSCIOUSNESS [None]
  - NAUSEA [None]
